FAERS Safety Report 8241929-6 (Version None)
Quarter: 2012Q1

REPORT INFORMATION
  Report Type: 
  Country: None (occurrence: None)
  Receive Date: 20120329
  Receipt Date: 20120315
  Transmission Date: 20120608
  Serious: Yes (Other)
  Sender: FDA-Public Use
  Company Number: AU-PAR PHARMACEUTICAL, INC-2012SCPR004281

PATIENT

DRUGS (11)
  1. ZOPICLONE [Interacting]
     Indication: EMOTIONAL DISTRESS
     Dosage: UNK, UNKNOWN
     Route: 065
  2. METOCLOPRAMIDE [Suspect]
     Indication: EMOTIONAL DISTRESS
     Dosage: OCCASSIONAL USE
     Route: 065
  3. FLUOXETINE [Suspect]
     Indication: EMOTIONAL DISTRESS
     Dosage: UNK, UNKNOWN
     Route: 065
  4. CIPROFLOXACIN [Interacting]
     Indication: ANTIBIOTIC THERAPY
     Dosage: UNK, UNKNOWN
     Route: 065
  5. VITAMIN MIXTURE CONTAINING SEROTONIN [Interacting]
     Indication: PRODUCT USED FOR UNKNOWN INDICATION
     Dosage: UNK, UNKNOWN
     Route: 065
  6. VENLAFAXINE [Interacting]
     Indication: EMOTIONAL DISTRESS
     Dosage: 300 MG, / DAY
     Route: 065
  7. VALPROATE SODIUM [Suspect]
     Indication: EMOTIONAL DISTRESS
     Dosage: 1000 MG, / DAY
     Route: 065
  8. ZOLPIDEM TARTRATE [Interacting]
     Dosage: UNK UNK, UNKNOWN
     Route: 065
  9. ZOLPIDEM TARTRATE [Interacting]
     Indication: EMOTIONAL DISTRESS
     Dosage: 10 MG, REPEATEDLY
     Route: 065
  10. DIAZEPAM [Suspect]
     Indication: EMOTIONAL DISTRESS
     Dosage: UNK, UNKNOWN
     Route: 065
  11. AMITRIPTYLINE HCL [Suspect]
     Indication: EMOTIONAL DISTRESS
     Dosage: UNK, UNKNOWN
     Route: 065

REACTIONS (6)
  - SEROTONIN SYNDROME [None]
  - TOXICITY TO VARIOUS AGENTS [None]
  - SOMNAMBULISM [None]
  - AKATHISIA [None]
  - DRUG INTERACTION [None]
  - HOMICIDE [None]
